FAERS Safety Report 16235267 (Version 1)
Quarter: 2019Q2

REPORT INFORMATION
  Report Type: Report from Study
  Country: US (occurrence: US)
  Receive Date: 20190424
  Receipt Date: 20190424
  Transmission Date: 20190711
  Serious: Yes (Other)
  Sender: FDA-Public Use
  Company Number: US-GILEAD-2019-0404193

PATIENT
  Age: 41 Year
  Sex: Male

DRUGS (1)
  1. AZTREONAM LYSINE [Suspect]
     Active Substance: AZTREONAM LYSINE
     Indication: CYSTIC FIBROSIS
     Dosage: 75 MG, TID FOR 28 DAYS ON AND 28 DAYS OFF, REPEAT
     Dates: start: 201101

REACTIONS (5)
  - Hepatic enzyme increased [Not Recovered/Not Resolved]
  - Lung infection pseudomonal [Unknown]
  - Cystic fibrosis [Not Recovered/Not Resolved]
  - Burkholderia infection [Unknown]
  - B-cell lymphoma [Unknown]
